FAERS Safety Report 8368863-5 (Version None)
Quarter: 2012Q2

REPORT INFORMATION
  Report Type: 
  Country: None (occurrence: None)
  Receive Date: 20120516
  Receipt Date: 20120507
  Transmission Date: 20120825
  Serious: Yes (Hospitalization)
  Sender: FDA-Public Use
  Company Number: TCI2012A02323

PATIENT
  Age: 67 Year
  Sex: Male

DRUGS (1)
  1. LANSOPRAZOLE [Suspect]
     Dosage: PER ORAL
     Route: 048

REACTIONS (3)
  - JAUNDICE [None]
  - RENAL FAILURE ACUTE [None]
  - HEPATIC FUNCTION ABNORMAL [None]
